FAERS Safety Report 5317372-6 (Version None)
Quarter: 2007Q2

REPORT INFORMATION
  Report Type: 
  Country: None (occurrence: None)
  Receive Date: 20070504
  Receipt Date: 20070430
  Transmission Date: 20071010
  Serious: Yes (Disabling)
  Sender: FDA-Public Use
  Company Number: GB-MERCK-0705GBR00003

PATIENT
  Age: 52 Year
  Sex: Male

DRUGS (1)
  1. COZAAR [Suspect]
     Route: 048
     Dates: start: 20040101

REACTIONS (2)
  - ARTHRALGIA [None]
  - TENDON PAIN [None]
